FAERS Safety Report 4513290-1 (Version None)
Quarter: 2004Q4

REPORT INFORMATION
  Report Type: 
  Country: None (occurrence: None)
  Receive Date: 20041124
  Receipt Date: 20041116
  Transmission Date: 20050328
  Serious: Yes (Death, Life-Threatening)
  Sender: FDA-Public Use
  Company Number: HQWYE481916NOV04

PATIENT
  Age: 69 Year
  Sex: Female

DRUGS (9)
  1. AMIODARONE HCL [Suspect]
     Indication: ARRHYTHMIA
     Dosage: 200 MG 1X PER 1 DAY; ORAL
     Route: 048
     Dates: start: 20040301, end: 20040510
  2. AMIODARONE HCL [Suspect]
     Indication: ATRIAL FIBRILLATION
     Dosage: 200 MG 1X PER 1 DAY; ORAL
     Route: 048
     Dates: start: 20040301, end: 20040510
  3. DILANTIN [Suspect]
     Indication: EPILEPSY
     Dosage: 300 MG 1X PER 1 DAY; UNKNOWN
     Dates: start: 20040301, end: 20040510
  4. NEO-MERCAZOLE TAB [Suspect]
     Indication: HYPERTHYROIDISM
     Dosage: 15 MG 1X PER 1 DAY; ORAL
     Route: 048
     Dates: start: 20040301, end: 20040510
  5. OMEPRAZOLE [Suspect]
     Indication: OESOPHAGEAL DISORDER
     Dosage: 20 MG 1X PER 1 DAY; UNKOWN
     Route: 065
     Dates: end: 20040510
  6. VALPROATE SODIUM [Suspect]
     Indication: CONVULSION
     Dosage: 1G 1X PER 1 DAY; ORAL
     Route: 048
     Dates: start: 20040229, end: 20040510
  7. VALPROATE SODIUM [Suspect]
     Indication: EPILEPSY
     Dosage: 1G 1X PER 1 DAY; ORAL
     Route: 048
     Dates: start: 20040229, end: 20040510
  8. WARFARIN SODIUM [Suspect]
     Indication: ARRHYTHMIA
     Dosage: 1 MG 1X PER 1 DAY; ORAL
     Route: 048
     Dates: start: 20040301, end: 20040510
  9. WARFARIN SODIUM [Suspect]
     Indication: ATRIAL FIBRILLATION
     Dosage: 1 MG 1X PER 1 DAY; ORAL
     Route: 048
     Dates: start: 20040301, end: 20040510

REACTIONS (12)
  - BLINDNESS UNILATERAL [None]
  - CARDIOMEGALY [None]
  - COMA HEPATIC [None]
  - DELIRIUM [None]
  - DYSPNOEA [None]
  - ENCEPHALOPATHY [None]
  - EXOPHTHALMOS [None]
  - HEPATIC FAILURE [None]
  - HEPATORENAL SYNDROME [None]
  - HYPERTHYROIDISM [None]
  - HYPOTENSION [None]
  - INTERNATIONAL NORMALISED RATIO INCREASED [None]
